FAERS Safety Report 8952238 (Version 1)
Quarter: 2012Q4

REPORT INFORMATION
  Report Type: 
  Country: US (occurrence: US)
  Receive Date: 20121204
  Receipt Date: 20121204
  Transmission Date: 20130627
  Serious: No
  Sender: FDA-Public Use
  Company Number: US-AMGEN-USASP2012071594

PATIENT
  Age: 60 Year
  Sex: Female

DRUGS (5)
  1. ENBREL [Suspect]
     Indication: RHEUMATOID ARTHRITIS
     Dosage: 50 mg, qwk
     Dates: start: 20120606
  2. METHOTREXATE [Concomitant]
     Dosage: 10 tabs/2.5mg tabs/weekly - duration: 3 years
  3. PREDNISONE [Concomitant]
     Dosage: 4 mg, qd/1tablet  duration: 14 years
  4. PLAQUENIL                          /00072602/ [Concomitant]
     Dosage: 200mg/twice daily/1 tab - duration: 10-12 years
  5. RELAFIN [Concomitant]
     Dosage: 750mg/twice daily/1 tab - duration: 10 years

REACTIONS (4)
  - Pain in extremity [Not Recovered/Not Resolved]
  - Arthralgia [Not Recovered/Not Resolved]
  - Osteoarthritis [Not Recovered/Not Resolved]
  - Injection site bruising [Not Recovered/Not Resolved]
